FAERS Safety Report 7410272-7 (Version None)
Quarter: 2011Q2

REPORT INFORMATION
  Report Type: 
  Country: None (occurrence: None)
  Receive Date: 20110412
  Receipt Date: 20110406
  Transmission Date: 20111010
  Serious: Yes (Hospitalization, Other)
  Sender: FDA-Public Use
  Company Number: BR-BAYER-2011-030133

PATIENT
  Age: 46 Year
  Sex: Female
  Weight: 64 kg

DRUGS (1)
  1. YASMIN [Suspect]
     Indication: AMENORRHOEA
     Dosage: 1 DF, QD
     Route: 048
     Dates: start: 20101201, end: 20110101

REACTIONS (1)
  - ISCHAEMIC STROKE [None]
